FAERS Safety Report 12999668 (Version 1)
Quarter: 2016Q4

REPORT INFORMATION
  Report Type: Spontaneous
  Country: JP (occurrence: JP)
  Receive Date: 20161205
  Receipt Date: 20161205
  Transmission Date: 20170207
  Serious: Yes (Other)
  Sender: FDA-Public Use
  Company Number: JP-SA-2016SA220645

PATIENT
  Age: 67 Year
  Sex: Male

DRUGS (2)
  1. 5-FU [Suspect]
     Active Substance: FLUOROURACIL
     Indication: OESOPHAGEAL CARCINOMA
     Route: 065
  2. DOCETAXEL. [Suspect]
     Active Substance: DOCETAXEL
     Indication: OESOPHAGEAL CARCINOMA
     Route: 065

REACTIONS (2)
  - Hyperammonaemia [Recovering/Resolving]
  - Altered state of consciousness [Recovered/Resolved]
